FAERS Safety Report 5340920-7 (Version None)
Quarter: 2007Q2

REPORT INFORMATION
  Report Type: 
  Country: None (occurrence: None)
  Receive Date: 20070531
  Receipt Date: 20070522
  Transmission Date: 20071010
  Serious: Yes (Disabling)
  Sender: FDA-Public Use
  Company Number: US-MERCK-0609USA01221

PATIENT
  Age: 45 Year
  Sex: Male

DRUGS (2)
  1. FOSAMAX [Suspect]
     Indication: OSTEOPOROSIS
     Route: 048
     Dates: start: 20040908, end: 20060404
  2. FOSAMAX [Suspect]
     Indication: RHEUMATOID ARTHRITIS
     Route: 048
     Dates: start: 20040908, end: 20060404

REACTIONS (10)
  - ANXIETY [None]
  - ARTHROPATHY [None]
  - BACK DISORDER [None]
  - DENTAL NECROSIS [None]
  - DEPRESSION [None]
  - GASTROENTERITIS ESCHERICHIA COLI [None]
  - OSTEONECROSIS [None]
  - PERIODONTITIS [None]
  - TEMPORAL ARTERITIS [None]
  - TOOTH FRACTURE [None]
